FAERS Safety Report 10691014 (Version 4)
Quarter: 2016Q1

REPORT INFORMATION
  Report Type: Spontaneous
  Country: US (occurrence: US)
  Receive Date: 20150105
  Receipt Date: 20160310
  Transmission Date: 20160525
  Serious: Yes (Other)
  Sender: FDA-Public Use
  Company Number: US-PFIZER INC-2014363088

PATIENT
  Age: 60 Year
  Sex: Female

DRUGS (12)
  1. VILAZODONE [Concomitant]
     Active Substance: VILAZODONE
     Indication: DEPRESSION
     Dosage: UNK
  2. ELAVIL [Concomitant]
     Active Substance: AMITRIPTYLINE HYDROCHLORIDE
     Dosage: UNK
  3. ADVAIR DISKUS [Concomitant]
     Active Substance: FLUTICASONE PROPIONATE\SALMETEROL XINAFOATE
     Dosage: UNK
  4. ULTRAM [Concomitant]
     Active Substance: TRAMADOL HYDROCHLORIDE
     Dosage: UNK
  5. LYRICA [Suspect]
     Active Substance: PREGABALIN
     Dosage: 150 MG 2-3 X DAILY
     Route: 048
     Dates: start: 2009, end: 2014
  6. CYCLOBENZAPRINE [Concomitant]
     Active Substance: CYCLOBENZAPRINE
     Dosage: UNK
  7. LYRICA [Suspect]
     Active Substance: PREGABALIN
     Dosage: 150 MG, 3X/DAY
     Route: 048
  8. TRAMADOL. [Concomitant]
     Active Substance: TRAMADOL
     Indication: PAIN
     Dosage: 100 MG, 4X/DAY
  9. LYRICA [Suspect]
     Active Substance: PREGABALIN
     Dosage: 150 MG IN THE MORNING AND 300MG AT NIGHT
     Route: 048
  10. LYRICA [Suspect]
     Active Substance: PREGABALIN
     Indication: FIBROMYALGIA
     Dosage: 150 MG IN THE MORNING AND 150 MG AT NIGHT
     Route: 048
     Dates: start: 2006
  11. VIIBRYD [Concomitant]
     Active Substance: VILAZODONE HYDROCHLORIDE
     Dosage: UNK
  12. TRAMADOL. [Concomitant]
     Active Substance: TRAMADOL
     Dosage: 100 MG 2-3 X DAILY

REACTIONS (11)
  - Disease recurrence [Recovered/Resolved]
  - Withdrawal syndrome [Unknown]
  - Burning sensation [Unknown]
  - Disturbance in attention [Not Recovered/Not Resolved]
  - Vision blurred [Recovered/Resolved]
  - Hypoaesthesia [Unknown]
  - Abnormal behaviour [Not Recovered/Not Resolved]
  - Feeling abnormal [Recovered/Resolved]
  - Suicidal ideation [Recovered/Resolved]
  - Drug dose omission [Unknown]
  - Stress [Unknown]
